FAERS Safety Report 7399169-9 (Version None)
Quarter: 2011Q1

REPORT INFORMATION
  Report Type: 
  Country: None (occurrence: None)
  Receive Date: 20110328
  Receipt Date: 20110314
  Transmission Date: 20110831
  Serious: Yes (Other)
  Sender: FDA-Public Use
  Company Number: 2011MA002402

PATIENT
  Age: 36 Year
  Sex: Male

DRUGS (1)
  1. TRIAMCINOLONE ACETONIDE [Suspect]
     Indication: PLANTAR FASCIITIS
     Dosage: 0.1 ML;1X;IM
     Route: 030

REACTIONS (1)
  - CHORIORETINOPATHY [None]
